FAERS Safety Report 8144491-1 (Version None)
Quarter: 2012Q1

REPORT INFORMATION
  Report Type: 
  Country: None (occurrence: None)
  Receive Date: 20120217
  Receipt Date: 20120203
  Transmission Date: 20120608
  Serious: Yes (Hospitalization)
  Sender: FDA-Public Use
  Company Number: FI-ROCHE-1037168

PATIENT
  Sex: Male

DRUGS (1)
  1. ROCEPHIN [Suspect]
     Indication: BORRELIA INFECTION
     Route: 042
     Dates: start: 20111202, end: 20111217

REACTIONS (3)
  - HYPOAESTHESIA [None]
  - TRANSAMINASES INCREASED [None]
  - PAIN IN EXTREMITY [None]
